FAERS Safety Report 10424647 (Version 3)
Quarter: 2014Q3

REPORT INFORMATION
  Report Type: Spontaneous
  Country: US (occurrence: US)
  Receive Date: 20140902
  Receipt Date: 20140930
  Transmission Date: 20150326
  Serious: Yes (Death, Life-Threatening, Other)
  Sender: FDA-Public Use
  Company Number: US-JNJFOC-20140900030

PATIENT

DRUGS (2)
  1. NUCYNTA [Suspect]
     Active Substance: TAPENTADOL HYDROCHLORIDE
     Indication: PAIN
     Route: 065
  2. NUCYNTA [Suspect]
     Active Substance: TAPENTADOL HYDROCHLORIDE
     Indication: DIABETIC NEUROPATHY
     Route: 065

REACTIONS (21)
  - Respiratory depression [Unknown]
  - Vomiting [Unknown]
  - Drug abuse [Unknown]
  - Mydriasis [Unknown]
  - Ataxia [Unknown]
  - Convulsion [Unknown]
  - Tachycardia [Unknown]
  - Irritability [Unknown]
  - Delusion [Unknown]
  - Lethargy [Unknown]
  - Hypertension [Unknown]
  - Death [Fatal]
  - Hallucination [Unknown]
  - Confusional state [Unknown]
  - Dysarthria [Unknown]
  - Miosis [Unknown]
  - Dizziness [Unknown]
  - Incorrect route of drug administration [Unknown]
  - Coma [Unknown]
  - Agitation [Unknown]
  - Medication error [Unknown]
